FAERS Safety Report 4739778-6 (Version None)
Quarter: 2005Q3

REPORT INFORMATION
  Report Type: 
  Country: None (occurrence: None)
  Receive Date: 20050810
  Receipt Date: 20050512
  Transmission Date: 20060218
  Serious: No
  Sender: FDA-Public Use
  Company Number: US-GLAXOSMITHKLINE-A0558336A

PATIENT
  Age: 55 Year
  Sex: Female

DRUGS (3)
  1. PAXIL [Suspect]
     Indication: DEPRESSION
     Dosage: 10MG PER DAY
     Route: 048
     Dates: start: 20050411
  2. ESTRATEST [Concomitant]
  3. MEDROXYPROGESTERONE [Concomitant]

REACTIONS (4)
  - ASTHENIA [None]
  - LIBIDO DECREASED [None]
  - PAIN IN EXTREMITY [None]
  - WEIGHT INCREASED [None]
